FAERS Safety Report 6776375-5 (Version None)
Quarter: 2010Q2

REPORT INFORMATION
  Report Type: 
  Country: None (occurrence: None)
  Receive Date: 20100615
  Receipt Date: 20100604
  Transmission Date: 20101027
  Serious: Yes (Hospitalization)
  Sender: FDA-Public Use
  Company Number: 013267

PATIENT
  Sex: Male

DRUGS (8)
  1. KEPPRA [Suspect]
     Dosage: (1000 MG ORAL)
     Route: 048
     Dates: start: 20100519, end: 20100526
  2. PANTORC [Concomitant]
  3. DINTOINA [Concomitant]
  4. ASPIRIN [Concomitant]
  5. LOBIVON [Concomitant]
  6. CALCIUM CARBONATE W/CHOLECALCIFEROL/SODIUM [Concomitant]
  7. ROCEPHIN [Concomitant]
  8. MINIAS [Concomitant]

REACTIONS (1)
  - NEUTROPENIA [None]
